FAERS Safety Report 20703176 (Version 5)
Quarter: 2022Q4

REPORT INFORMATION
  Report Type: Spontaneous
  Country: PL (occurrence: PL)
  Receive Date: 20220413
  Receipt Date: 20221029
  Transmission Date: 20230113
  Serious: Yes (Hospitalization, Other)
  Sender: FDA-Public Use
  Company Number: PL-MLMSERVICE-20220324-3449323-1

PATIENT
  Age: 67 Year
  Sex: Female

DRUGS (9)
  1. SERTRALINE [Interacting]
     Active Substance: SERTRALINE HYDROCHLORIDE
     Indication: Depression
     Dosage: 100 MILLIGRAM, TWO TIMES A DAY
     Route: 065
  2. SERTRALINE [Interacting]
     Active Substance: SERTRALINE HYDROCHLORIDE
     Dosage: 200 MILLIGRAM, ONCE A DAY
     Route: 065
  3. VENLAFAXINE [Interacting]
     Active Substance: VENLAFAXINE HYDROCHLORIDE
     Indication: Depression
     Dosage: 150 MILLIGRAM, ONCE A DAY
     Route: 065
  4. DORZOLAMIDE\TIMOLOL [Interacting]
     Active Substance: DORZOLAMIDE\TIMOLOL
     Indication: Glaucoma
     Dosage: 2 DROP, TWO TIMES A DAY (ONE DROP INTO EACH EYE AT 8 AM AND AT 8 PM )
     Route: 047
  5. DORZOLAMIDE\TIMOLOL [Interacting]
     Active Substance: DORZOLAMIDE\TIMOLOL
     Dosage: 1 DROP, TWO TIMES A DAY (1 DROP, BID (INTO EACH EYE), (IN 1ML: 5MG AND 20 MG OF EACH, RESPECTIVELY)
     Route: 065
  6. DORZOLAMIDE\TIMOLOL [Interacting]
     Active Substance: DORZOLAMIDE\TIMOLOL
     Dosage: 4 DROP, ONCE A DAY
  7. TIMOLOL [Interacting]
     Active Substance: TIMOLOL
     Indication: Glaucoma
     Dosage: 2 DROP, ONCE A DAY (1 DRP, BID AT 8 AM AND AT 8 PM )
  8. BROMAZEPAM [Concomitant]
     Active Substance: BROMAZEPAM
     Indication: Depression
     Dosage: 3 MILLIGRAM, ONCE A DAY
     Route: 065
  9. DORZOLAMIDE [Concomitant]
     Active Substance: DORZOLAMIDE
     Indication: Glaucoma
     Dosage: 2 DROP, ONCE A DAY (1 DRP, BID (1 ML: 5 MG AND 20 MG) )

REACTIONS (6)
  - Bradycardia [Recovered/Resolved]
  - Drug interaction [Recovered/Resolved]
  - Drug clearance decreased [Recovered/Resolved]
  - Sinoatrial block [Recovered/Resolved]
  - Nodal rhythm [Recovered/Resolved]
  - Drug-genetic interaction [Recovered/Resolved]
